FAERS Safety Report 9629447 (Version 2)
Quarter: 2013Q4

REPORT INFORMATION
  Report Type: Spontaneous
  Country: US (occurrence: US)
  Receive Date: 20131017
  Receipt Date: 20131023
  Transmission Date: 20140711
  Serious: Yes (Death, Hospitalization)
  Sender: FDA-Public Use
  Company Number: US-BAXTER-2013BAX040900

PATIENT
  Age: 75 Year
  Sex: Female

DRUGS (4)
  1. DIANEAL LOW CALCIUM [Suspect]
     Indication: PERITONEAL DIALYSIS
     Route: 033
     Dates: end: 20130827
  2. DIANEAL LOW CALCIUM [Suspect]
     Route: 033
     Dates: start: 20130826, end: 20130827
  3. EXTRANEAL [Suspect]
     Indication: PERITONEAL DIALYSIS
     Route: 033
     Dates: end: 20130827
  4. EXTRANEAL [Suspect]
     Route: 033
     Dates: start: 20130826, end: 20130827

REACTIONS (1)
  - Cardio-respiratory arrest [Fatal]
